FAERS Safety Report 23549040 (Version 1)
Quarter: 2024Q1

REPORT INFORMATION
  Report Type: Spontaneous
  Country: IT (occurrence: IT)
  Receive Date: 20240221
  Receipt Date: 20240221
  Transmission Date: 20240409
  Serious: Yes (Death, Other)
  Sender: FDA-Public Use
  Company Number: IT-PFIZER INC-2010016676

PATIENT
  Age: 55 Year
  Sex: Female

DRUGS (3)
  1. CYTARABINE [Suspect]
     Active Substance: CYTARABINE
     Indication: Non-Hodgkin^s lymphoma
     Dosage: 2000 MG/M2, DAILY
     Route: 042
     Dates: start: 20090928, end: 20090930
  2. DEXAMETHASONE SODIUM PHOSPHATE [Suspect]
     Active Substance: DEXAMETHASONE PHOSPHATE\DEXAMETHASONE SODIUM PHOSPHATE
     Indication: Non-Hodgkin^s lymphoma
     Dosage: 4 MG/M2, DAILY
     Route: 042
     Dates: start: 20090928, end: 20090930
  3. MITOXANTRONE [Suspect]
     Active Substance: MITOXANTRONE HYDROCHLORIDE
     Indication: Non-Hodgkin^s lymphoma
     Dosage: 8 MG/M2, DAILY
     Route: 042
     Dates: start: 20090928, end: 20090930

REACTIONS (8)
  - Encephalitis viral [Fatal]
  - Klebsiella sepsis [Fatal]
  - Staphylococcal infection [Unknown]
  - Coma [Unknown]
  - Adrenal insufficiency [Recovered/Resolved]
  - Hypotension [Recovered/Resolved]
  - Hypokalaemia [Recovered/Resolved]
  - Hypocalcaemia [Recovered/Resolved]

NARRATIVE: CASE EVENT DATE: 20090928
